FAERS Safety Report 7916489-7 (Version None)
Quarter: 2011Q4

REPORT INFORMATION
  Report Type: 
  Country: None (occurrence: None)
  Receive Date: 20111114
  Receipt Date: 20111031
  Transmission Date: 20120403
  Serious: Yes (Life-Threatening, Other)
  Sender: FDA-Public Use
  Company Number: 2011P1010019

PATIENT
  Age: 19 Year
  Sex: Female
  Weight: 70 kg

DRUGS (3)
  1. MIDAZOLAM [Suspect]
     Dosage: 2 MG; IV
     Route: 042
  2. FENTANYL [Suspect]
     Indication: ANAESTHESIA
     Dosage: 100 UG; IV
     Route: 042
  3. PROPOFOL [Suspect]
     Indication: INDUCTION OF ANAESTHESIA
     Dosage: 150 MG; IV
     Route: 042

REACTIONS (4)
  - HYPOTENSION [None]
  - BRADYCARDIA [None]
  - CARDIAC FAILURE [None]
  - PULMONARY OEDEMA [None]
